FAERS Safety Report 8831756 (Version 1)
Quarter: 2012Q4

REPORT INFORMATION
  Report Type: 
  Country: US (occurrence: US)
  Receive Date: 20121009
  Receipt Date: 20121009
  Transmission Date: 20130627
  Serious: Yes (Hospitalization, Other)
  Sender: FDA-Public Use
  Company Number: US-US-EMD SERONO, INC.-7164991

PATIENT
  Sex: Male
  Weight: 91 kg

DRUGS (3)
  1. REBIF [Suspect]
     Indication: MULTIPLE SCLEROSIS
     Dates: start: 20061222
  2. LOPID [Concomitant]
     Indication: BLOOD TRIGLYCERIDES INCREASED
  3. ANTIDEPRESSANT [Concomitant]
     Indication: PRODUCT USED FOR UNKNOWN INDICATION

REACTIONS (5)
  - Hallucination, auditory [Recovering/Resolving]
  - Cellulitis [Recovered/Resolved]
  - Fungal infection [Unknown]
  - Anxiety [Unknown]
  - Multiple sclerosis [Unknown]
